FAERS Safety Report 14576614 (Version 7)
Quarter: 2019Q3

REPORT INFORMATION
  Report Type: Report from Study
  Country: HU (occurrence: HU)
  Receive Date: 20180227
  Receipt Date: 20190830
  Transmission Date: 20191004
  Serious: Yes (Death, Hospitalization, Other)
  Sender: FDA-Public Use
  Company Number: HU-ROCHE-2074326

PATIENT
  Age: 76 Year
  Sex: Male
  Weight: 86 kg

DRUGS (17)
  1. NEBIVOLOL. [Concomitant]
     Active Substance: NEBIVOLOL
     Indication: HYPERTENSION
     Route: 065
     Dates: start: 20170508
  2. COBIMETINIB. [Suspect]
     Active Substance: COBIMETINIB
     Indication: MALIGNANT MELANOMA
     Dosage: MOST RECENT DOSE PRIOR TO EVENT ONSET ON 03/JAN/2018,MOST RECENT DOSE PRIOR TO AE ONSET 07/FEB/2018,
     Route: 048
     Dates: start: 20170314
  3. COVEREX [Concomitant]
     Active Substance: PERINDOPRIL ERBUMINE
     Indication: HYPERTENSION
     Route: 065
     Dates: start: 1977
  4. GLUCOSE [Concomitant]
     Active Substance: DEXTROSE
     Indication: PARENTERAL NUTRITION
     Route: 065
     Dates: start: 20180222, end: 20180223
  5. DIAZEPAM. [Concomitant]
     Active Substance: DIAZEPAM
     Route: 065
     Dates: start: 20180222, end: 20180223
  6. VEMURAFENIB. [Suspect]
     Active Substance: VEMURAFENIB
     Indication: MALIGNANT MELANOMA
     Dosage: TOTAL DOSE ADMINISTRATIOM : 4?MOST RECENT DOSE: 03/JAN/2018
     Route: 048
     Dates: start: 20170314
  7. PANTOPRAZOL [PANTOPRAZOLE] [Concomitant]
     Active Substance: PANTOPRAZOLE
     Indication: DYSPEPSIA
     Route: 065
     Dates: start: 20180222, end: 20180223
  8. DEXAMETHASON [DEXAMETHASONE] [Concomitant]
     Active Substance: DEXAMETHASONE
     Indication: HYDROCEPHALUS
     Route: 042
     Dates: start: 20180222, end: 20180223
  9. RINGERS LACTATE [Concomitant]
     Active Substance: CALCIUM CHLORIDE\POTASSIUM CHLORIDE\SODIUM LACTATE
     Indication: HYPOVOLAEMIA
     Route: 065
     Dates: start: 20180222, end: 20180223
  10. COVEREX AS [Concomitant]
     Active Substance: PERINDOPRIL ARGININE
     Indication: HYPERTENSION
     Route: 065
     Dates: start: 1977
  11. XANAX [Concomitant]
     Active Substance: ALPRAZOLAM
     Indication: ANXIETY
     Route: 065
     Dates: start: 2014
  12. PLACEBO [Suspect]
     Active Substance: UNSPECIFIED INGREDIENT
     Indication: MALIGNANT MELANOMA
     Dosage: MOST RECENT DOSE PRIROR TO EVENT ONSET ON 16/JAN/2018
     Route: 042
     Dates: start: 20170411
  13. TENAXUM [Concomitant]
     Active Substance: RILMENIDINE
     Indication: HYPERTENSION
     Route: 065
     Dates: start: 1977
  14. ASPIRIN [ACETYLSALICYLIC ACID] [Concomitant]
     Active Substance: ASPIRIN
     Indication: THROMBOSIS
     Route: 065
     Dates: start: 20170103
  15. CLOPIDOGREL [Concomitant]
     Active Substance: CLOPIDOGREL BISULFATE
     Indication: THROMBOSIS
     Route: 065
     Dates: start: 20170106
  16. MANNITOL. [Concomitant]
     Active Substance: MANNITOL
     Indication: FLUID OVERLOAD
     Route: 065
     Dates: start: 20180222, end: 20180223
  17. ENOXAPARIN [Concomitant]
     Active Substance: ENOXAPARIN
     Route: 065
     Dates: start: 20180220, end: 20180223

REACTIONS (3)
  - Dehydration [Not Recovered/Not Resolved]
  - Hydrocephalus [Fatal]
  - Thalamus haemorrhage [Unknown]

NARRATIVE: CASE EVENT DATE: 20180213
